FAERS Safety Report 8046009-0 (Version None)
Quarter: 2012Q1

REPORT INFORMATION
  Report Type: 
  Country: None (occurrence: None)
  Receive Date: 20120113
  Receipt Date: 20120103
  Transmission Date: 20120608
  Serious: Yes (Other)
  Sender: FDA-Public Use
  Company Number: US-PFIZER INC-2012001429

PATIENT
  Sex: Female
  Weight: 57.1 kg

DRUGS (2)
  1. PRISTIQ [Suspect]
     Indication: DEPRESSION
     Dosage: 100 MG, 1X/DAY
     Route: 048
     Dates: start: 20090101
  2. PRISTIQ [Suspect]
     Dosage: UNK
     Route: 048

REACTIONS (7)
  - DEPRESSION [None]
  - BODY HEIGHT DECREASED [None]
  - ROAD TRAFFIC ACCIDENT [None]
  - VITAMIN D DECREASED [None]
  - SUICIDAL IDEATION [None]
  - ERYTHEMA [None]
  - THYROID FUNCTION TEST ABNORMAL [None]
